FAERS Safety Report 7600770-5 (Version None)
Quarter: 2011Q2

REPORT INFORMATION
  Report Type: 
  Country: None (occurrence: None)
  Receive Date: 20110629
  Receipt Date: 20110613
  Transmission Date: 20111010
  Serious: Yes (Life-Threatening, Hospitalization)
  Sender: FDA-Public Use
  Company Number: IPC201106-001914

PATIENT
  Age: 3 Day
  Sex: Female
  Weight: 5.6 kg

DRUGS (3)
  1. PROPRANOLOL HYDROCHLORIDE [Suspect]
     Indication: SUPRAVENTRICULAR TACHYCARDIA
     Dosage: 0.5 MG/KG PER OS (2.5 MG)
  2. ADENOSINE [Suspect]
     Indication: SUPRAVENTRICULAR TACHYCARDIA
     Dosage: 0.2 MG/KG INTRAVENOUS
     Route: 042
  3. VERAPAMIL [Suspect]
     Indication: SUPRAVENTRICULAR TACHYCARDIA
     Dosage: 0.1 MG/KG INTRAVENOUS
     Route: 042

REACTIONS (17)
  - LOW CARDIAC OUTPUT SYNDROME [None]
  - CIRCULATORY COLLAPSE [None]
  - BLOOD CREATININE INCREASED [None]
  - TACHYPNOEA [None]
  - HYPERKALAEMIA [None]
  - METABOLIC ACIDOSIS [None]
  - DRUG INTERACTION [None]
  - HYPOTENSION [None]
  - ANURIA [None]
  - SUPRAVENTRICULAR TACHYCARDIA [None]
  - ATRIAL FIBRILLATION [None]
  - PNEUMONIA [None]
  - VENTRICULAR DYSFUNCTION [None]
  - STENOTROPHOMONAS INFECTION [None]
  - BRADYCARDIA [None]
  - VENTRICULAR TACHYCARDIA [None]
  - OFF LABEL USE [None]
